FAERS Safety Report 13100351 (Version 1)
Quarter: 2017Q1

REPORT INFORMATION
  Report Type: Spontaneous
  Country: AU (occurrence: AU)
  Receive Date: 20170110
  Receipt Date: 20170110
  Transmission Date: 20170428
  Serious: Yes (Death)
  Sender: FDA-Public Use
  Company Number: AU-ROCHE-1861686

PATIENT
  Age: 59 Year
  Sex: Female

DRUGS (1)
  1. METALYSE [Suspect]
     Active Substance: TENECTEPLASE
     Indication: ACUTE MYOCARDIAL INFARCTION
     Route: 065
     Dates: start: 20161011, end: 20161011

REACTIONS (2)
  - Haemorrhage intracranial [Fatal]
  - Drug ineffective [Fatal]

NARRATIVE: CASE EVENT DATE: 20161011
